FAERS Safety Report 8346004-8 (Version None)
Quarter: 2012Q2

REPORT INFORMATION
  Report Type: 
  Country: None (occurrence: None)
  Receive Date: 20120509
  Receipt Date: 20120504
  Transmission Date: 20120825
  Serious: Yes (Other)
  Sender: FDA-Public Use
  Company Number: US-PFIZER INC-2012110226

PATIENT
  Sex: Male

DRUGS (1)
  1. LYRICA [Suspect]
     Dosage: 200 MG, 4X/DAY

REACTIONS (4)
  - WEIGHT INCREASED [None]
  - TREMOR [None]
  - MUSCLE TWITCHING [None]
  - DYSKINESIA [None]
